FAERS Safety Report 17798736 (Version 1)
Quarter: 2020Q2

REPORT INFORMATION
  Report Type: Spontaneous
  Country: US (occurrence: US)
  Receive Date: 20200518
  Receipt Date: 20200518
  Transmission Date: 20200714
  Serious: Yes (Other)
  Sender: FDA-Public Use
  Company Number: US-PFIZER INC-2020194388

PATIENT
  Age: 65 Year
  Sex: Female

DRUGS (2)
  1. DEPO-ESTRADIOL [Suspect]
     Active Substance: ESTRADIOL CYPIONATE
     Indication: HYSTERECTOMY
     Dosage: UNK UNK, WEEKLY, (3 UNITS UNKNOWN, THINKS IT IS MG, ONCE WEEKLY BY INJECTION)
  2. TESTOSTERONE. [Concomitant]
     Active Substance: TESTOSTERONE
     Indication: HYSTERECTOMY
     Dosage: UNK, (0.1, UNIT UNKNOWN, BY INJECTION ABOUT ONCE EVERY 2-3 WEEKS)

REACTIONS (2)
  - Mental impairment [Unknown]
  - Intentional product misuse [Unknown]

NARRATIVE: CASE EVENT DATE: 201912
